FAERS Safety Report 7581599-3 (Version None)
Quarter: 2011Q2

REPORT INFORMATION
  Report Type: 
  Country: None (occurrence: None)
  Receive Date: 20110629
  Receipt Date: 20110622
  Transmission Date: 20111010
  Serious: Yes (Life-Threatening, Other)
  Sender: FDA-Public Use
  Company Number: US-AMGEN-USACT2011032006

PATIENT
  Age: 71 Year
  Sex: Female

DRUGS (6)
  1. BEVACIZUMAB [Concomitant]
     Indication: BREAST CANCER
     Dosage: UNK
     Route: 042
     Dates: start: 20100421
  2. DOXORUBICIN HCL [Concomitant]
     Indication: BREAST CANCER
     Dosage: 60 MG/M2, UNK
     Dates: start: 20100421
  3. FILGRASTIM [Suspect]
     Indication: BREAST CANCER
     Dosage: 5 A?G/KG, UNK
     Route: 058
     Dates: start: 20100421
  4. PEGFILGRASTIM [Suspect]
     Indication: BREAST CANCER
     Dosage: 6 MG, UNK
     Route: 058
  5. CYCLOPHOSPHAMIDE [Concomitant]
     Dosage: 600 MG/M2, UNK
     Route: 042
     Dates: start: 20100421
  6. PACLITAXEL [Concomitant]
     Indication: BREAST CANCER
     Dosage: 80 MG/M2, UNK
     Route: 042
     Dates: start: 20100421

REACTIONS (4)
  - BLOOD SODIUM DECREASED [None]
  - OPPORTUNISTIC INFECTION [None]
  - FEBRILE NEUTROPENIA [None]
  - HAEMOGLOBIN DECREASED [None]
